FAERS Safety Report 9326119 (Version 3)
Quarter: 2013Q3

REPORT INFORMATION
  Report Type: Spontaneous
  Country: BR (occurrence: BR)
  Receive Date: 20130604
  Receipt Date: 20130823
  Transmission Date: 20140515
  Serious: Yes (Other)
  Sender: FDA-Public Use
  Company Number: PHHY2013BR056355

PATIENT
  Sex: Male
  Weight: 78 kg

DRUGS (3)
  1. ALISKIREN [Suspect]
     Indication: HYPERTENSION
     Dosage: UNK UKN, UNK
  2. RASILEZ AMLO [Suspect]
     Dosage: 1 DF(300/10MG), DAILY
     Route: 048
  3. RASILEZ HCT [Suspect]
     Dosage: 0.5 DF, DAILY
     Route: 048

REACTIONS (2)
  - Aortic injury [Unknown]
  - Gingival hypertrophy [Not Recovered/Not Resolved]
